FAERS Safety Report 7217928-X (Version None)
Quarter: 2011Q1

REPORT INFORMATION
  Report Type: 
  Country: None (occurrence: None)
  Receive Date: 20110110
  Receipt Date: 20110105
  Transmission Date: 20110831
  Serious: Yes (Hospitalization)
  Sender: FDA-Public Use
  Company Number: MX-ELI_LILLY_AND_COMPANY-MX201101001257

PATIENT
  Sex: Male
  Weight: 74.5 kg

DRUGS (4)
  1. CLONAZEPAM [Concomitant]
     Dosage: 2 MG, UNK
     Dates: start: 20090101, end: 20090101
  2. OLANZAPINE [Suspect]
     Indication: SCHIZOPHRENIA
     Dosage: 10 MG, DAILY (1/D)
     Route: 048
     Dates: start: 20091111, end: 20091116
  3. HALOPERIDOL [Concomitant]
     Dosage: 10 MG, UNK
     Dates: start: 20090101
  4. CLONAZEPAM [Concomitant]
     Dosage: 2 MG, EVERY HOUR
     Dates: start: 20090101

REACTIONS (2)
  - AGGRESSION [None]
  - HALLUCINATION [None]
